FAERS Safety Report 16852753 (Version 1)
Quarter: 2019Q3

REPORT INFORMATION
  Report Type: Spontaneous
  Country: GB (occurrence: GB)
  Receive Date: 20190925
  Receipt Date: 20190925
  Transmission Date: 20191005
  Serious: Yes (Other)
  Sender: FDA-Public Use
  Company Number: GB-MYLANLABS-2019M1088857

PATIENT
  Age: 85 Year
  Sex: Male
  Weight: 68 kg

DRUGS (16)
  1. QUININE [Concomitant]
     Active Substance: QUININE
     Dosage: AT NIGHT.
     Dates: start: 20181217, end: 20190416
  2. HYPROMELLOSE [Concomitant]
     Active Substance: HYPROMELLOSES
     Dosage: BOTH EYES.
     Dates: start: 20170407
  3. ACETYLSALICYLIC ACID [Concomitant]
     Active Substance: ASPIRIN
     Dosage: IN WATER.
     Dates: start: 20181213
  4. LANSOPRAZOLE. [Suspect]
     Active Substance: LANSOPRAZOLE
     Indication: PRODUCT USED FOR UNKNOWN INDICATION
     Dates: start: 20190416
  5. LANSOPRAZOLE. [Suspect]
     Active Substance: LANSOPRAZOLE
     Dosage: 1 DOSAGE FORM
     Dates: start: 20161230, end: 20190214
  6. FORTISIP [Concomitant]
     Active Substance: CARBOHYDRATES\FATTY ACIDS\MINERALS\PROTEIN\VITAMINS
     Dosage: MIXED FLAVOURS.
     Dates: start: 20190404
  7. METOCLOPRAMIDE. [Concomitant]
     Active Substance: METOCLOPRAMIDE
     Dosage: 3 DOSAGE FORM, QD
     Dates: start: 20190402, end: 20190407
  8. ATORVASTATIN [Concomitant]
     Active Substance: ATORVASTATIN
     Dosage: AT NIGHT.
     Dates: start: 20181213
  9. TAMSULOSIN HYDROCHLORIDE. [Concomitant]
     Active Substance: TAMSULOSIN HYDROCHLORIDE
     Dosage: 1 DOSAGE FORM, QD
     Dates: start: 20170814
  10. HUMULIN M3 [Concomitant]
     Active Substance: INSULIN HUMAN
     Dosage: USE AS DIRECTED.
     Dates: start: 20181213
  11. INDAPAMIDE. [Concomitant]
     Active Substance: INDAPAMIDE
     Dosage: EACH MORNING.
     Dates: start: 20181213, end: 20190214
  12. LOSARTAN. [Concomitant]
     Active Substance: LOSARTAN
     Dosage: 1 DOSAGE FORM, QD
     Dates: start: 20181213
  13. PROCHLORPERAZINE. [Concomitant]
     Active Substance: PROCHLORPERAZINE
     Dosage: 3 DOSAGE FORM, QD
     Dates: start: 20190402
  14. LOPERAMIDE [Concomitant]
     Active Substance: LOPERAMIDE
     Dosage: FOUR TIMES A DAY
     Dates: start: 20171010
  15. CAPSAICIN. [Concomitant]
     Active Substance: CAPSAICIN
     Dosage: APPLY.
     Dates: start: 20161230
  16. RANITIDINE. [Concomitant]
     Active Substance: RANITIDINE
     Dosage: AT NIGHT.
     Dates: start: 20190416

REACTIONS (2)
  - Swollen tongue [Recovered/Resolved]
  - Ulcer [Unknown]

NARRATIVE: CASE EVENT DATE: 20190416
